FAERS Safety Report 4758899-5 (Version None)
Quarter: 2005Q3

REPORT INFORMATION
  Report Type: 
  Country: None (occurrence: None)
  Receive Date: 20050826
  Receipt Date: 20050630
  Transmission Date: 20060218
  Serious: Yes (Hospitalization)
  Sender: FDA-Public Use
  Company Number: ATO-05-0253

PATIENT
  Age: 58 Year
  Sex: Female

DRUGS (1)
  1. TRISENOX [Suspect]
     Indication: MULTIPLE MYELOMA
     Dosage: (0.25 MG/KG, 2X/WK), IVI
     Route: 042
     Dates: start: 20050609, end: 20050609

REACTIONS (2)
  - APHASIA [None]
  - PLATELET COUNT DECREASED [None]
